FAERS Safety Report 19015288 (Version 1)
Quarter: 2021Q1

REPORT INFORMATION
  Report Type: Spontaneous
  Country: US (occurrence: US)
  Receive Date: 20210316
  Receipt Date: 20210316
  Transmission Date: 20210420
  Serious: Yes (Death, Other)
  Sender: FDA-Public Use
  Company Number: US-INCYTE CORPORATION-2021IN001951

PATIENT

DRUGS (1)
  1. JAKAFI [Suspect]
     Active Substance: RUXOLITINIB
     Dosage: 80 MILLIGRAM, BID
     Route: 048
     Dates: start: 20201023, end: 20210303

REACTIONS (1)
  - Acute lymphocytic leukaemia [Fatal]
